FAERS Safety Report 19192203 (Version 2)
Quarter: 2021Q2

REPORT INFORMATION
  Report Type: Report from Study
  Country: AT (occurrence: AT)
  Receive Date: 20210428
  Receipt Date: 20210506
  Transmission Date: 20210717
  Serious: Yes (Hospitalization, Other)
  Sender: FDA-Public Use
  Company Number: AT-TAKEDA-2021TUS025702

PATIENT
  Sex: Female

DRUGS (1)
  1. VEDOLIZUMAB [Suspect]
     Active Substance: VEDOLIZUMAB
     Indication: CROHN^S DISEASE
     Dosage: UNK
     Route: 042
     Dates: start: 20170801, end: 20190902

REACTIONS (5)
  - Gastritis [Not Recovered/Not Resolved]
  - Spondylitis [Not Recovered/Not Resolved]
  - Hiatus hernia [Not Recovered/Not Resolved]
  - Crohn^s disease [Recovered/Resolved]
  - Tension headache [Recovered/Resolved]

NARRATIVE: CASE EVENT DATE: 202012
